FAERS Safety Report 19518383 (Version 1)
Quarter: 2021Q3

REPORT INFORMATION
  Report Type: Spontaneous
  Country: US (occurrence: US)
  Receive Date: 20210709
  Receipt Date: 20210709
  Transmission Date: 20211014
  Serious: Yes (Hospitalization)
  Sender: FDA-Public Use
  Company Number: None

PATIENT
  Age: 58 Year
  Sex: Female

DRUGS (16)
  1. COPAXONE [Suspect]
     Active Substance: GLATIRAMER ACETATE
     Indication: MULTIPLE SCLEROSIS
     Dosage: ?          OTHER FREQUENCY:3X PER WEEK;?
     Route: 058
     Dates: start: 20140723
  2. LEVOTHYROXINE. [Concomitant]
     Active Substance: LEVOTHYROXINE
  3. GINKOBA [Concomitant]
     Active Substance: GINKGO
  4. ESCITALOPRAM [Concomitant]
     Active Substance: ESCITALOPRAM OXALATE
  5. XANAX [Concomitant]
     Active Substance: ALPRAZOLAM
  6. ZINC. [Concomitant]
     Active Substance: ZINC
  7. LUBRICANT DROPS [Concomitant]
     Active Substance: CARBOXYMETHYLCELLULOSE SODIUM
  8. CIPROFLOXACIN. [Concomitant]
     Active Substance: CIPROFLOXACIN
  9. VITAMIN D3 [Concomitant]
     Active Substance: CHOLECALCIFEROL
  10. GALZIN [Concomitant]
     Active Substance: ZINC ACETATE
  11. IBUPROFEN. [Concomitant]
     Active Substance: IBUPROFEN
  12. RIZATRIPTAN. [Concomitant]
     Active Substance: RIZATRIPTAN
  13. MIRALAX [Concomitant]
     Active Substance: POLYETHYLENE GLYCOL 3350
  14. NITROFURANTOIN. [Concomitant]
     Active Substance: NITROFURANTOIN
  15. CALTRATE [Concomitant]
     Active Substance: CALCIUM CARBONATE
  16. MELATONIN [Concomitant]
     Active Substance: MELATONIN

REACTIONS (1)
  - Urinary tract infection [None]

NARRATIVE: CASE EVENT DATE: 20210702
